FAERS Safety Report 5988500-4 (Version None)
Quarter: 2008Q4

REPORT INFORMATION
  Report Type: 
  Country: None (occurrence: None)
  Receive Date: 20081208
  Receipt Date: 20081208
  Transmission Date: 20090506
  Serious: No
  Sender: FDA-Public Use
  Company Number: None

PATIENT
  Sex: Female
  Weight: 127.9144 kg

DRUGS (1)
  1. LISINOPRIL [Suspect]
     Indication: HYPERTENSION
     Dosage: ONE PILL ONCE A DAY PO
     Route: 048
     Dates: start: 20010301, end: 20081022

REACTIONS (2)
  - DRUG EFFECT DECREASED [None]
  - DRUG HYPERSENSITIVITY [None]
